FAERS Safety Report 19265476 (Version 1)
Quarter: 2021Q2

REPORT INFORMATION
  Report Type: Report from Study
  Country: US (occurrence: US)
  Receive Date: 20210517
  Receipt Date: 20210517
  Transmission Date: 20210717
  Serious: Yes (Death, Other)
  Sender: FDA-Public Use
  Company Number: US-EMD SERONO-9237816

PATIENT
  Age: 69 Year
  Sex: Male

DRUGS (1)
  1. MAVENCLAD [Suspect]
     Active Substance: CLADRIBINE
     Indication: MULTIPLE SCLEROSIS
     Route: 048
     Dates: start: 20201110

REACTIONS (2)
  - Thyrotoxic crisis [Unknown]
  - Myocardial infarction [Fatal]

NARRATIVE: CASE EVENT DATE: 202104
